FAERS Safety Report 6771438-2 (Version None)
Quarter: 2010Q2

REPORT INFORMATION
  Report Type: 
  Country: None (occurrence: None)
  Receive Date: 20100616
  Receipt Date: 20100607
  Transmission Date: 20101027
  Serious: Yes (Other)
  Sender: FDA-Public Use
  Company Number: US-JNJFOC-20100207134

PATIENT
  Age: 66 Year
  Sex: Male
  Weight: 81.65 kg

DRUGS (5)
  1. EXTRA STRENGTH TYLENOL [Suspect]
     Indication: HEADACHE
     Route: 048
  2. EXTRA STRENGTH TYLENOL [Suspect]
     Route: 048
  3. EXTRA STRENGTH TYLENOL [Suspect]
     Route: 048
  4. EXTRA STRENGTH TYLENOL [Suspect]
     Route: 048
  5. JANUMET [Concomitant]
     Indication: DIABETES MELLITUS
     Dosage: 50/500 MG DAILY

REACTIONS (7)
  - FEELING HOT [None]
  - HYPERSENSITIVITY [None]
  - OEDEMA PERIPHERAL [None]
  - PRODUCT QUALITY ISSUE [None]
  - PRURITUS GENERALISED [None]
  - SKIN TIGHTNESS [None]
  - THROAT TIGHTNESS [None]
